FAERS Safety Report 4542961-6 (Version None)
Quarter: 2004Q4

REPORT INFORMATION
  Report Type: 
  Country: None (occurrence: None)
  Receive Date: 20041229
  Receipt Date: 20041216
  Transmission Date: 20050328
  Serious: Yes (Other)
  Sender: FDA-Public Use
  Company Number: 2004-BP-12214BP(0)

PATIENT
  Age: 68 Year
  Sex: Male
  Weight: 83.9 kg

DRUGS (2)
  1. FLOMAX [Suspect]
     Indication: BENIGN PROSTATIC HYPERPLASIA
     Dosage: 0.4 MG (0.4 MG QD) PO
     Route: 048
     Dates: end: 20041101
  2. METFORMIN HCL [Concomitant]

REACTIONS (4)
  - MYDRIASIS [None]
  - PHOTOSENSITIVITY REACTION [None]
  - PROSTATE CANCER [None]
  - URINE OUTPUT INCREASED [None]
